FAERS Safety Report 9832799 (Version 1)
Quarter: 2014Q1

REPORT INFORMATION
  Report Type: Spontaneous
  Country: GB (occurrence: GB)
  Receive Date: 20140121
  Receipt Date: 20140121
  Transmission Date: 20141002
  Serious: Yes (Death, Hospitalization)
  Sender: FDA-Public Use
  Company Number: GB-GLAXOSMITHKLINE-B0959759A

PATIENT
  Age: 63 Year
  Sex: Female

DRUGS (8)
  1. PAZOPANIB [Suspect]
     Indication: METASTATIC RENAL CELL CARCINOMA
     Dosage: 600MG PER DAY
     Route: 048
     Dates: start: 20131031, end: 20131230
  2. CYCLIZINE [Concomitant]
     Dosage: 150MG PER DAY
  3. TRAMADOL [Concomitant]
  4. OMEPRAZOLE [Concomitant]
     Dosage: 20MG PER DAY
  5. BISOPROLOL [Concomitant]
     Dosage: 1.25MG PER DAY
     Route: 048
  6. TOLTERODINE [Concomitant]
     Dosage: 4MG PER DAY
  7. RAMIPRIL [Concomitant]
     Dosage: 5MG PER DAY
  8. MELOXICAM [Concomitant]
     Dosage: 15MG PER DAY

REACTIONS (7)
  - Renal failure acute [Fatal]
  - Nausea [Unknown]
  - Vomiting [Unknown]
  - Neutrophilia [Unknown]
  - Hypotension [Unknown]
  - Acidosis [Unknown]
  - Urine output decreased [Not Recovered/Not Resolved]
